FAERS Safety Report 7001055-0 (Version None)
Quarter: 2010Q3

REPORT INFORMATION
  Report Type: 
  Country: None (occurrence: None)
  Receive Date: 20100920
  Receipt Date: 20080303
  Transmission Date: 20110219
  Serious: Yes (Hospitalization, Other)
  Sender: FDA-Public Use
  Company Number: US-ASTRAZENECA-2007UW14903

PATIENT
  Age: 16782 Day
  Sex: Male
  Weight: 73.9 kg

DRUGS (11)
  1. SEROQUEL [Suspect]
     Indication: DEPRESSION
     Route: 048
     Dates: start: 20041001, end: 20050501
  2. SEROQUEL [Suspect]
     Dosage: STRENGTH- 25MG, 50MG  DOSE- 25MG-75MG DAILY
     Route: 048
     Dates: start: 20050421
  3. ENALAPRIL [Concomitant]
     Indication: HYPERTENSION
     Dosage: STRENGTH- 5MG, 10MG, 20MG  DOSE- 5MG-20MG DAILY
     Route: 048
  4. NORVASC [Concomitant]
  5. REMERON [Concomitant]
     Route: 048
  6. PEPCID [Concomitant]
     Route: 048
  7. CARDIZEM [Concomitant]
     Dosage: 60-180 MG DAILY
     Route: 048
  8. ATIVAN [Concomitant]
     Indication: AGITATION
  9. ATIVAN [Concomitant]
     Indication: ANXIETY
  10. DIAZEPAM [Concomitant]
     Indication: DELIRIUM
  11. LEXAPRO [Concomitant]
     Dosage: STRENGTH- 10MG, 20MG  DOSE- 10MG-20MG DAILY
     Route: 048

REACTIONS (1)
  - PANCREATITIS ACUTE [None]
